FAERS Safety Report 8919455 (Version 1)
Quarter: 2012Q4

REPORT INFORMATION
  Report Type: 
  Country: US (occurrence: US)
  Receive Date: 20121121
  Receipt Date: 20121121
  Transmission Date: 20130627
  Serious: Yes (Other)
  Sender: FDA-Public Use
  Company Number: US-RANBAXY-2012US-62243

PATIENT
  Age: 42 Year
  Sex: Female

DRUGS (4)
  1. QUETIAPINE [Suspect]
     Indication: DEPRESSION
     Dosage: UNK
     Route: 065
  2. CITALOPRAM [Suspect]
     Indication: DEPRESSION
     Dosage: UNK
     Route: 065
  3. ONDANSETRON [Suspect]
     Indication: PRODUCT USED FOR UNKNOWN INDICATION
     Dosage: UNK
     Route: 065
  4. AMFETAMINE W/DEXAMFETAMINE [Suspect]
     Indication: DEPRESSION
     Dosage: UNK
     Route: 065

REACTIONS (1)
  - Serotonin syndrome [Recovering/Resolving]
